FAERS Safety Report 5159950-3 (Version None)
Quarter: 2006Q4

REPORT INFORMATION
  Report Type: 
  Country: None (occurrence: None)
  Receive Date: 20061117
  Receipt Date: 20061106
  Transmission Date: 20070319
  Serious: Yes (Death)
  Sender: FDA-Public Use
  Company Number: 2006BI016102

PATIENT
  Age: 54 Year
  Sex: Male

DRUGS (16)
  1. NATALIZUMAB [Suspect]
     Indication: MULTIPLE SCLEROSIS
     Dosage: IV
     Route: 042
     Dates: start: 20060926, end: 20061024
  2. LANTUS [Concomitant]
  3. NOVOLOG [Concomitant]
  4. LASIX [Concomitant]
  5. REGLAN [Concomitant]
  6. DSS [Concomitant]
  7. AMITRIPTYLINE HCL [Concomitant]
  8. ZOCOR [Concomitant]
  9. FLOMAX [Concomitant]
  10. ASPIRIN [Concomitant]
  11. PREVACID [Concomitant]
  12. VITAMIN CAP [Concomitant]
  13. MOTRIN [Concomitant]
  14. TYLENOL [Concomitant]
  15. SILVADENE [Concomitant]
  16. TUMS [Concomitant]

REACTIONS (3)
  - ASTHENIA [None]
  - FALL [None]
  - SKIN ULCER [None]
